FAERS Safety Report 9339960 (Version 3)
Quarter: 2013Q3

REPORT INFORMATION
  Report Type: Spontaneous
  Country: US (occurrence: US)
  Receive Date: 20130610
  Receipt Date: 20130809
  Transmission Date: 20140515
  Serious: No
  Sender: FDA-Public Use
  Company Number: US-PFIZER INC-2013172013

PATIENT
  Age: 81 Year
  Sex: Female
  Weight: 55.78 kg

DRUGS (2)
  1. PREMARIN [Suspect]
     Indication: VULVOVAGINAL BURNING SENSATION
     Dosage: 0.625 MG/G, 2X/WEEK
     Route: 067
     Dates: start: 20130528
  2. PREMARIN [Suspect]
     Indication: ATROPHIC VULVOVAGINITIS

REACTIONS (3)
  - Drug ineffective [Unknown]
  - Malaise [Not Recovered/Not Resolved]
  - Emotional disorder [Not Recovered/Not Resolved]
